FAERS Safety Report 7247552-4 (Version None)
Quarter: 2011Q1

REPORT INFORMATION
  Report Type: 
  Country: None (occurrence: None)
  Receive Date: 20110127
  Receipt Date: 20110126
  Transmission Date: 20110831
  Serious: Yes (Other)
  Sender: FDA-Public Use
  Company Number: GXKR2011DE00712

PATIENT
  Age: 36 Year
  Sex: Male
  Weight: 80 kg

DRUGS (2)
  1. AZITHROMYCIN [Suspect]
     Indication: LARYNGITIS
     Dosage: 500 MG, QD
     Dates: start: 20101029, end: 20101029
  2. IBUPROFEN [Concomitant]
     Dosage: UNK
     Dates: start: 20101029

REACTIONS (4)
  - MALAISE [None]
  - CIRCULATORY COLLAPSE [None]
  - ELECTROCARDIOGRAM QT PROLONGED [None]
  - HYPERHIDROSIS [None]
